FAERS Safety Report 8080592 (Version 9)
Quarter: 2014Q4

REPORT INFORMATION
  Report Type: Report from Study
  Country: JP (occurrence: JP)
  Receive Date: 20110808
  Receipt Date: 20141009
  Transmission Date: 20150529
  Serious: Yes (Death, Hospitalization, Other)
  Sender: FDA-Public Use
  Company Number: PHHY2011JP69322

PATIENT
  Age: 68 Year
  Sex: Male
  Weight: 63 kg

DRUGS (13)
  1. SENNOSIDE [Concomitant]
     Active Substance: SENNOSIDES
     Indication: METASTATIC RENAL CELL CARCINOMA
     Dosage: 24 MG, UNK
     Route: 048
     Dates: start: 20111003, end: 20111006
  2. LASIX [Concomitant]
     Active Substance: FUROSEMIDE
     Dosage: 20 MG
     Route: 048
     Dates: end: 20110824
  3. HYPEN [Concomitant]
     Active Substance: ETODOLAC
     Indication: METASTATIC RENAL CELL CARCINOMA
     Dosage: 400 MG
     Route: 048
     Dates: start: 20110603, end: 20111006
  4. CYTOTEC [Concomitant]
     Active Substance: MISOPROSTOL
     Indication: METASTATIC RENAL CELL CARCINOMA
     Dosage: 400 UG, UNK
     Route: 048
     Dates: start: 20110603, end: 20111006
  5. NOVAMIN [Concomitant]
     Active Substance: PROCHLORPERAZINE MALEATE
     Indication: METASTATIC RENAL CELL CARCINOMA
     Dosage: 15 MG
     Route: 048
     Dates: start: 20111003, end: 20111006
  6. LASIX [Concomitant]
     Active Substance: FUROSEMIDE
     Indication: METASTATIC RENAL CELL CARCINOMA
     Dosage: 10 MG
     Route: 048
     Dates: start: 20110512
  7. HALCION [Concomitant]
     Active Substance: TRIAZOLAM
     Indication: PRODUCT USED FOR UNKNOWN INDICATION
     Dosage: 0.25 MG, UNK
     Route: 048
     Dates: end: 20111006
  8. FLIVAS [Concomitant]
     Active Substance: NAFTOPIDIL
     Indication: METASTATIC RENAL CELL CARCINOMA
     Dosage: 25 MG
     Route: 048
     Dates: start: 20110812, end: 20111003
  9. AFINITOR [Suspect]
     Active Substance: EVEROLIMUS
     Indication: METASTATIC RENAL CELL CARCINOMA
     Dosage: 10 MG, DAILY
     Route: 048
     Dates: start: 20110514, end: 20110824
  10. ELTACIN [Concomitant]
     Indication: PRODUCT USED FOR UNKNOWN INDICATION
     Dosage: 1 G, UNK
     Route: 065
     Dates: start: 20110610
  11. OXYCONTIN [Concomitant]
     Active Substance: OXYCODONE HYDROCHLORIDE
     Indication: METASTATIC RENAL CELL CARCINOMA
     Dosage: 10 MG
     Route: 048
     Dates: start: 20111003, end: 20111006
  12. SUNITINIB MALATE [Concomitant]
     Active Substance: SUNITINIB MALATE
     Indication: METASTATIC RENAL CELL CARCINOMA
     Dosage: 25 MG
     Route: 048
     Dates: start: 20110330, end: 20110506
  13. EVIPROSTAT [Concomitant]
     Active Substance: CHIMAPHILA UMBELLATA\MANGANESE CHLORIDE\POPULUS TREMULOIDES\SODIUM TAUROCHOLATE
     Indication: METASTATIC RENAL CELL CARCINOMA
     Route: 048
     Dates: start: 20110812, end: 20111003

REACTIONS (5)
  - Malignant neoplasm progression [Fatal]
  - C-reactive protein increased [Not Recovered/Not Resolved]
  - Cellulitis [Not Recovered/Not Resolved]
  - Neutrophil count decreased [Recovering/Resolving]
  - Hyperglycaemia [Unknown]

NARRATIVE: CASE EVENT DATE: 20110527
